FAERS Safety Report 7736378-0 (Version None)
Quarter: 2011Q3

REPORT INFORMATION
  Report Type: 
  Country: None (occurrence: None)
  Receive Date: 20110908
  Receipt Date: 20110901
  Transmission Date: 20111222
  Serious: Yes (Death, Hospitalization)
  Sender: FDA-Public Use
  Company Number: US-BAYER-201021798NA

PATIENT
  Age: 57 Year
  Sex: Female
  Weight: 89.545 kg

DRUGS (26)
  1. NEXAVAR [Suspect]
     Dosage: 400 MG, BID
     Route: 048
     Dates: start: 20100208, end: 20100311
  2. NEXAVAR [Suspect]
     Indication: THYROID CANCER METASTATIC
     Dosage: 400 MG, BID
     Route: 048
     Dates: start: 20091217, end: 20100115
  3. LOMOTIL [DIPHENOXYLATE HYDROCHLORIDE] [Concomitant]
     Indication: DIARRHOEA
     Route: 048
     Dates: start: 20100224, end: 20100224
  4. SODIUM CHLORIDE [Concomitant]
     Dosage: 500 ML, UNK
     Dates: start: 20101208
  5. NEXAVAR [Suspect]
     Dosage: 400 MG, BID
     Route: 048
     Dates: start: 20100115, end: 20100208
  6. NEXAVAR [Suspect]
     Dosage: 400 MG, BID
     Route: 048
     Dates: start: 20100408
  7. PROCARDIA XL [Concomitant]
     Route: 048
     Dates: start: 20100204, end: 20100505
  8. VALIUM [Concomitant]
     Indication: MUSCLE RELAXANT THERAPY
     Route: 048
     Dates: start: 20090101, end: 20090515
  9. VITAMIN D [Concomitant]
     Indication: SUPPLEMENTATION THERAPY
     Route: 048
     Dates: start: 20080101
  10. FIORINAL W/CODEINE [Concomitant]
     Indication: MIGRAINE
     Route: 048
     Dates: start: 20100416
  11. LORAZEPAM [Concomitant]
     Indication: ANXIETY
     Dosage: ONCE A MONTH FOR CT SCAN
     Route: 048
     Dates: start: 20090101
  12. CALCIUM CARBONATE [Concomitant]
     Indication: HYPOCALCAEMIA
     Dates: start: 20100411
  13. NEXAVAR [Suspect]
     Dosage: 400 MG, BID
     Route: 048
     Dates: start: 20100311, end: 20100408
  14. NEXAVAR [Suspect]
     Dosage: CYCLE 8 - AS USED DOSE: 400-200 MG
     Route: 048
     Dates: start: 20100803, end: 20100805
  15. FIORICET W/ CODEINE [Concomitant]
     Indication: MIGRAINE
     Dosage: 1 TABLET 6-7 X DAILY
     Route: 048
     Dates: start: 19800101, end: 20100416
  16. HYZAAR [Concomitant]
     Indication: HYPERTENSION
     Dosage: 1 TABLET DAILY - AS USED DOSE: 100-25 MG
     Route: 048
     Dates: start: 19990101, end: 20100505
  17. PRISTIQ [Concomitant]
     Indication: DEPRESSION
     Route: 048
     Dates: start: 20090101
  18. PREDNISONE [Concomitant]
     Indication: IRITIS
     Route: 048
     Dates: start: 20000101
  19. DILAUDID [Concomitant]
     Indication: PAIN
  20. NEXAVAR [Suspect]
     Dosage: CYCLE 9 - AS USED DOSE: 400-200 MG
     Route: 048
     Dates: start: 20100805, end: 20100901
  21. NEXAVAR [Suspect]
     Dosage: CYCLE 12 : 400+200 MG QD
     Route: 048
     Dates: start: 20100923, end: 20100101
  22. AMBIEN [Concomitant]
     Indication: INSOMNIA
     Dosage: 10-15 MG
     Route: 048
     Dates: start: 19990101
  23. PROCARDIA XL [Concomitant]
     Indication: HYPERTENSION
     Route: 048
     Dates: start: 20050101, end: 20100204
  24. SYNTHROID [Concomitant]
     Indication: HYPOTHYROIDISM
     Route: 048
     Dates: start: 20070601
  25. NEXAVAR [Suspect]
     Dosage: CYCLE 10-DUE TO SUBJECT ERROR
     Route: 048
  26. NEXAVAR [Suspect]
     Dosage: CYCLE 10 - AS USED DOES: 400-200 MG
     Route: 048
     Dates: start: 20100921

REACTIONS (4)
  - THYROID CANCER METASTATIC [None]
  - MIGRAINE [None]
  - MITRAL VALVE INCOMPETENCE [None]
  - PLEURAL EFFUSION [None]
